FAERS Safety Report 6291019-7 (Version None)
Quarter: 2009Q3

REPORT INFORMATION
  Report Type: 
  Country: None (occurrence: None)
  Receive Date: 20090730
  Receipt Date: 20090727
  Transmission Date: 20100115
  Serious: Yes (Hospitalization)
  Sender: FDA-Public Use
  Company Number: US-WYE-H10347609

PATIENT
  Sex: Male
  Weight: 107.5 kg

DRUGS (2)
  1. TEMSIROLIMUS [Suspect]
     Indication: PROSTATE CANCER
     Route: 042
     Dates: start: 20090629
  2. BEVACIZUMAB [Suspect]
     Indication: PROSTATE CANCER
     Route: 042
     Dates: start: 20090706

REACTIONS (3)
  - CONDITION AGGRAVATED [None]
  - FATIGUE [None]
  - PAIN [None]
